FAERS Safety Report 6817575-5 (Version None)
Quarter: 2010Q3

REPORT INFORMATION
  Report Type: 
  Country: None (occurrence: None)
  Receive Date: 20100706
  Receipt Date: 20100701
  Transmission Date: 20110219
  Serious: Yes (Death, Other)
  Sender: FDA-Public Use
  Company Number: PHHY2010US43083

PATIENT

DRUGS (1)
  1. IMATINIB [Suspect]
     Indication: CHRONIC MYELOID LEUKAEMIA
     Dosage: UNK
     Route: 048

REACTIONS (7)
  - BONE MARROW FAILURE [None]
  - HERPES VIRUS INFECTION [None]
  - KAPOSI'S SARCOMA [None]
  - LYMPHADENOPATHY [None]
  - PANCYTOPENIA [None]
  - PYREXIA [None]
  - SPLENOMEGALY [None]
